FAERS Safety Report 5727360-3 (Version None)
Quarter: 2008Q2

REPORT INFORMATION
  Report Type: 
  Country: None (occurrence: None)
  Receive Date: 20080505
  Receipt Date: 20080425
  Transmission Date: 20081010
  Serious: Yes (Disabling)
  Sender: FDA-Public Use
  Company Number: JP-SP-2007-04144

PATIENT
  Age: 69 Year
  Sex: Female

DRUGS (2)
  1. IMMUCYST [Suspect]
     Indication: CARCINOMA IN SITU OF BLADDER
     Route: 043
     Dates: start: 20070528, end: 20070702
  2. IMMUCYST [Suspect]
     Route: 043
     Dates: start: 20070528, end: 20070702

REACTIONS (4)
  - CYSTITIS INTERSTITIAL [None]
  - DYSURIA [None]
  - POLLAKIURIA [None]
  - UNDERDOSE [None]
